FAERS Safety Report 20679230 (Version 1)
Quarter: 2022Q2

REPORT INFORMATION
  Report Type: Spontaneous
  Country: US (occurrence: None)
  Receive Date: 20220405
  Receipt Date: 20220405
  Transmission Date: 20220721
  Serious: Yes (Disabling)
  Sender: FDA-Public Use
  Company Number: None

PATIENT
  Age: 89 Year
  Sex: Female
  Weight: 72 kg

DRUGS (1)
  1. CHLORTHALIDONE [Suspect]
     Active Substance: CHLORTHALIDONE
     Indication: Hypertension
     Dosage: OTHER QUANTITY : 1 TABLET(S);?FREQUENCY : DAILY;?
     Route: 048
     Dates: start: 20220101, end: 20220402

REACTIONS (10)
  - Urinary retention [None]
  - Flushing [None]
  - Asthenia [None]
  - Fatigue [None]
  - Confusional state [None]
  - Abdominal discomfort [None]
  - Insomnia [None]
  - Decreased appetite [None]
  - Palpitations [None]
  - Back pain [None]

NARRATIVE: CASE EVENT DATE: 20220201
